FAERS Safety Report 8810283 (Version 2)
Quarter: 2012Q4

REPORT INFORMATION
  Report Type: 
  Country: BG (occurrence: BG)
  Receive Date: 20120926
  Receipt Date: 20121009
  Transmission Date: 20130627
  Serious: Yes (Hospitalization, Other)
  Sender: FDA-Public Use
  Company Number: BG-009507513-1209BGR009758

PATIENT
  Age: 55 Year
  Sex: Female

DRUGS (3)
  1. PEGINTRON [Suspect]
     Indication: HEPATITIS C
     Dosage: 120 Microgram, UNK
     Route: 058
     Dates: start: 20111208, end: 20120928
  2. REBETOL [Suspect]
     Indication: HEPATITIS C
     Dosage: 600 mg, UNK
     Route: 048
     Dates: start: 20111208, end: 20120928
  3. VICTRELIS [Suspect]
     Indication: HEPATITIS C
     Dosage: 2400mg
     Route: 048
     Dates: start: 20120112, end: 20120928

REACTIONS (6)
  - Speech disorder [Recovered/Resolved]
  - Dysarthria [Recovered/Resolved]
  - Pyrexia [Recovered/Resolved]
  - Asthenia [Recovering/Resolving]
  - Headache [Recovering/Resolving]
  - Anaemia [Recovering/Resolving]
